FAERS Safety Report 5453556-4 (Version None)
Quarter: 2007Q3

REPORT INFORMATION
  Report Type: 
  Country: None (occurrence: None)
  Receive Date: 20070913
  Receipt Date: 20070828
  Transmission Date: 20080115
  Serious: Yes (Disabling)
  Sender: FDA-Public Use
  Company Number: 2007JP003715

PATIENT
  Age: 41 Year
  Sex: Male

DRUGS (18)
  1. PROGRAF [Suspect]
     Indication: CORD BLOOD TRANSPLANT THERAPY
     Dosage: 2 MG, D, IV DRIP
     Route: 041
     Dates: start: 20050528
  2. LIPOVAS (SIMVASTATIN) TABLET [Concomitant]
  3. LORAZEPAM [Concomitant]
  4. ALLOPURINOL [Concomitant]
  5. JUSO (SODIUM BICARBONATE) POWDER [Concomitant]
  6. ZOVIRAX [Concomitant]
  7. DIFLUCAN (FLUCONAZOLE) CAPSULE [Concomitant]
  8. CIPROXAN (CIPROFLOXACIN HYDROCHLORIDE) TABLET [Concomitant]
  9. OMEPRAL TABLET [Concomitant]
  10. VANCOMYCIN (VANCOMYCIN HYDROCHLORIDE) GRANULE [Concomitant]
  11. ITRIZOLE (ITRACONAZOLE) CAPSULE [Concomitant]
  12. PREDNISOLONE TAB [Concomitant]
  13. PARIET (RABEPRAZOLE SODIUM) TABLET [Concomitant]
  14. POLARAMINE (CHLORPHENAMINE MALEATE) GRANULE [Concomitant]
  15. MEROPEN (MEROPENEM) INJECTION [Concomitant]
  16. KYTRIL (GRANISETRON) INJECTION [Concomitant]
  17. HYDROCORTONE INJECTION [Concomitant]
  18. ALKERAN [Concomitant]

REACTIONS (10)
  - AMNESIA [None]
  - CEREBRAL ATROPHY [None]
  - ENCEPHALITIS HERPES [None]
  - HUMAN HERPESVIRUS 6 INFECTION [None]
  - HYPONATRAEMIA [None]
  - INFECTION IN AN IMMUNOCOMPROMISED HOST [None]
  - INSOMNIA [None]
  - PANCYTOPENIA [None]
  - PSEUDOMEMBRANOUS COLITIS [None]
  - SELF INJURIOUS BEHAVIOUR [None]
